FAERS Safety Report 18044686 (Version 2)
Quarter: 2020Q3

REPORT INFORMATION
  Report Type: Spontaneous
  Country: SK (occurrence: SK)
  Receive Date: 20200720
  Receipt Date: 20200731
  Transmission Date: 20201103
  Serious: Yes (Death, Hospitalization, Other)
  Sender: FDA-Public Use
  Company Number: SK-SA-2020SA184088

PATIENT

DRUGS (23)
  1. CELASKON [Concomitant]
     Dosage: UNK
  2. LUSOPRESS [Concomitant]
     Active Substance: NITRENDIPINE
     Dosage: UNK
  3. CORVATON [Concomitant]
     Active Substance: MOLSIDOMINE
     Dosage: UNK,30 * 8 MG
  4. DIAPREL [Concomitant]
     Active Substance: GLICLAZIDE
     Dosage: UNK,120 * 60 MG
  5. MILURIT [Concomitant]
     Active Substance: ALLOPURINOL
     Dosage: UNK,30 * 300 MG
  6. AMLOPIN [AMLODIPINE BESYLATE] [Concomitant]
     Active Substance: AMLODIPINE BESYLATE
     Dosage: UNK,30 * 5 MG
  7. RILMEX [Concomitant]
     Dosage: UNK,30 * 1 MG
  8. PRALUENT [Suspect]
     Active Substance: ALIROCUMAB
     Indication: TYPE V HYPERLIPIDAEMIA
     Dosage: 75 MG
     Route: 058
     Dates: start: 201903
  9. HYDROCORTISONE MEDOPHARM [Concomitant]
     Dosage: UNK
  10. ENELBIN N [HEPARIN SODIUM;SALICYLIC ACID] [Concomitant]
     Dosage: UNK,1?0?1
  11. VIGANTOL [COLECALCIFEROL] [Concomitant]
     Active Substance: CHOLECALCIFEROL
     Dosage: UNK, QW,20 KV
  12. OZZION [Concomitant]
     Dosage: UNK,28 * 40 MG
  13. EBRANTIL [URAPIDIL] [Concomitant]
     Active Substance: URAPIDIL
     Dosage: UNK,50 * 30 MG
  14. PREVENTAX [Concomitant]
     Dosage: UNK,50 * 100 MG
  15. UROSAN [PENTOSAN POLYSULFATE SODIUM] [Concomitant]
     Dosage: UNK,100 * 250 MG
  16. BETALOC ZOK [Concomitant]
     Active Substance: METOPROLOL SUCCINATE
     Dosage: UNK,28 * 25 MG
  17. ACIDUM FOLICUM [Concomitant]
     Active Substance: FOLIC ACID
     Dosage: UNK,1?0?0
  18. CALCIUM CARBONATE. [Concomitant]
     Active Substance: CALCIUM CARBONATE
     Dosage: UNK,3 * 1
  19. LAGOSA [Concomitant]
     Active Substance: DIETARY SUPPLEMENT\HERBALS\MILK THISTLE
     Dosage: UNK,100 * 150 MG
  20. ATORIS [Concomitant]
     Active Substance: ATORVASTATIN CALCIUM
     Dosage: UNK
  21. FURON [FUROSEMIDE] [Concomitant]
     Active Substance: FUROSEMIDE
     Dosage: UNK,50 * 40 MG
  22. PYRIDOXIN [Concomitant]
     Active Substance: PYRIDOXINE
     Dosage: UNK
  23. ZEMPLAR [Concomitant]
     Active Substance: PARICALCITOL
     Dosage: UNK

REACTIONS (20)
  - Nausea [Unknown]
  - Arteriovenous fistula site haemorrhage [Unknown]
  - Dizziness [Unknown]
  - Feeling abnormal [Unknown]
  - Death [Fatal]
  - Duodenal ulcer [Unknown]
  - Asthenia [Unknown]
  - Vomiting [Unknown]
  - Arteriovenous fistula [Unknown]
  - Normocytic anaemia [Unknown]
  - Chronic kidney disease [Unknown]
  - Atrial fibrillation [Unknown]
  - Hypercalcaemia [Unknown]
  - Bradycardia [Unknown]
  - Myocardial ischaemia [Unknown]
  - Arteriovenous fistula site haematoma [Unknown]
  - Nephrogenic anaemia [Unknown]
  - Hyperkalaemia [Unknown]
  - Acute myocardial infarction [Unknown]
  - Atrioventricular block [Unknown]

NARRATIVE: CASE EVENT DATE: 201905
